FAERS Safety Report 7669930-1 (Version None)
Quarter: 2011Q3

REPORT INFORMATION
  Report Type: 
  Country: None (occurrence: None)
  Receive Date: 20110808
  Receipt Date: 20110725
  Transmission Date: 20111222
  Serious: Yes (Hospitalization)
  Sender: FDA-Public Use
  Company Number: IT-TEVA-294408ISR

PATIENT
  Age: 62 Year
  Sex: Female

DRUGS (3)
  1. DISULFIRAM [Interacting]
     Indication: ALCOHOLISM
     Dosage: 400 MILLIGRAM;
  2. VALPROIC ACID [Suspect]
     Indication: AFFECTIVE DISORDER
     Dosage: 1000 MILLIGRAM;
  3. OXYBATE SODIUM [Interacting]
     Dosage: 46 MG/KG;

REACTIONS (3)
  - PSYCHOTIC BEHAVIOUR [None]
  - GRAND MAL CONVULSION [None]
  - DRUG INTERACTION [None]
